FAERS Safety Report 7587280-9 (Version None)
Quarter: 2011Q3

REPORT INFORMATION
  Report Type: 
  Country: None (occurrence: None)
  Receive Date: 20110701
  Receipt Date: 20110627
  Transmission Date: 20111222
  Serious: Yes (Death)
  Sender: FDA-Public Use
  Company Number: US-ELI_LILLY_AND_COMPANY-US201106007808

PATIENT
  Sex: Female

DRUGS (5)
  1. SYNTHROID [Concomitant]
  2. PREDNISONE [Concomitant]
  3. HUMATROPE [Suspect]
     Indication: FAILURE TO THRIVE
     Dosage: 1.7 MG, SIX TIMES A WEEK
     Dates: start: 20080101
  4. INDOCIN [Concomitant]
  5. ASPIRIN [Concomitant]

REACTIONS (4)
  - AFFECTIVE DISORDER [None]
  - FATIGUE [None]
  - PAIN [None]
  - SEPTIC SHOCK [None]
